FAERS Safety Report 5179116-0 (Version None)
Quarter: 2006Q4

REPORT INFORMATION
  Report Type: 
  Country: None (occurrence: None)
  Receive Date: 20061204
  Receipt Date: 20061117
  Transmission Date: 20070319
  Serious: Yes (Other)
  Sender: FDA-Public Use
  Company Number: 200610195BBE

PATIENT
  Age: 61 Year
  Sex: Male
  Weight: 92.9874 kg

DRUGS (10)
  1. GAMUNEX [Suspect]
     Indication: CHRONIC LYMPHOCYTIC LEUKAEMIA
     Dosage: SEE IMAGE
     Dates: start: 20060501
  2. GAMUNEX [Suspect]
     Indication: CHRONIC LYMPHOCYTIC LEUKAEMIA
     Dosage: SEE IMAGE
     Dates: start: 20060627
  3. GAMUNEX [Suspect]
  4. CYCLOSPORINE [Concomitant]
  5. SULFATRIM [Concomitant]
  6. LASIX [Concomitant]
  7. SYNTHROID [Concomitant]
  8. PREDNISONE TAB [Concomitant]
  9. LOSEC [Concomitant]
  10. PRAVACHOL [Concomitant]

REACTIONS (6)
  - BACK PAIN [None]
  - BLOOD PRESSURE INCREASED [None]
  - BODY TEMPERATURE INCREASED [None]
  - CHEST PAIN [None]
  - CHILLS [None]
  - HYPERHIDROSIS [None]
